FAERS Safety Report 8819447 (Version 1)
Quarter: 2012Q4

REPORT INFORMATION
  Report Type: 
  Country: DE (occurrence: DE)
  Receive Date: 20121001
  Receipt Date: 20121001
  Transmission Date: 20130627
  Serious: Yes (Death, Hospitalization, Other)
  Sender: FDA-Public Use
  Company Number: DE-PAR PHARMACEUTICAL, INC-2012SCPR004633

PATIENT

DRUGS (2)
  1. VERAPAMIL EXTENDED RELEASE [Suspect]
     Indication: PRODUCT USED FOR UNKNOWN INDICATION
     Dosage: UNK, Unknown
     Route: 048
  2. OPIPRAMOL [Suspect]
     Indication: PRODUCT USED FOR UNKNOWN INDICATION
     Dosage: UNK, Unknown
     Route: 048

REACTIONS (7)
  - Overdose [Fatal]
  - Circulatory collapse [Fatal]
  - Death [Fatal]
  - Coma [Not Recovered/Not Resolved]
  - Bezoar [Fatal]
  - Cardiac arrest [Not Recovered/Not Resolved]
  - Atrioventricular block complete [Not Recovered/Not Resolved]
